FAERS Safety Report 4541660-4 (Version None)
Quarter: 2004Q4

REPORT INFORMATION
  Report Type: 
  Country: None (occurrence: None)
  Receive Date: 20041227
  Receipt Date: 20041220
  Transmission Date: 20050328
  Serious: No
  Sender: FDA-Public Use
  Company Number: RS004896-NL

PATIENT
  Age: 32 Year
  Sex: 0

DRUGS (1)
  1. RABEPRAZOLE SODIUM [Suspect]
     Dosage: 40 MG, 2 IN 1 D, ORAL  2 YEARS AGO
     Route: 048

REACTIONS (3)
  - ARRHYTHMIA [None]
  - ASTHENIA [None]
  - MYALGIA [None]
